FAERS Safety Report 25555891 (Version 1)
Quarter: 2025Q3

REPORT INFORMATION
  Report Type: Spontaneous
  Country: US (occurrence: US)
  Receive Date: 20250715
  Receipt Date: 20250715
  Transmission Date: 20251020
  Serious: No
  Sender: SANOFI AVENTIS
  Company Number: US-SA-2025SA197708

PATIENT
  Sex: Female
  Weight: 59.09 kg

DRUGS (20)
  1. DUPIXENT [Suspect]
     Active Substance: DUPILUMAB
     Indication: Illness
     Dosage: 300 MG, QOW
     Route: 058
  2. CLOBETASOL PROPIONATE [Concomitant]
     Active Substance: CLOBETASOL PROPIONATE
  3. SYSTANE (HYPROMELLOSE 2910 (4000 MPA.S)) [Concomitant]
     Active Substance: HYPROMELLOSE 2910 (4000 MPA.S)
  4. DEXAMETHASONE [Concomitant]
     Active Substance: DEXAMETHASONE
  5. NEOMYCIN HYDROCHLORIDE;POLYMYXIN B SULFATE [Concomitant]
  6. FLUOCINONIDE [Concomitant]
     Active Substance: FLUOCINONIDE
  7. HUMALOG [Concomitant]
     Active Substance: INSULIN LISPRO
  8. TRIAMCINOLONE ACETONIDE [Concomitant]
     Active Substance: TRIAMCINOLONE ACETONIDE
  9. LANTUS [Concomitant]
     Active Substance: INSULIN GLARGINE
  10. GAS-X [Concomitant]
     Active Substance: DIMETHICONE
  11. ATORVASTATIN CALCIUM [Concomitant]
     Active Substance: ATORVASTATIN CALCIUM
  12. GEMTESA [Concomitant]
     Active Substance: VIBEGRON
  13. MAGNESIUM [Concomitant]
     Active Substance: MAGNESIUM
  14. CEFADROXIL [Concomitant]
     Active Substance: CEFADROXIL
  15. ELIQUIS [Concomitant]
     Active Substance: APIXABAN
  16. AMLODIPINE BESYLATE [Concomitant]
     Active Substance: AMLODIPINE BESYLATE
  17. DONEPEZIL HYDROCHLORIDE [Concomitant]
     Active Substance: DONEPEZIL HYDROCHLORIDE
  18. LOSARTAN POTASSIUM [Concomitant]
     Active Substance: LOSARTAN POTASSIUM
  19. DULOXETINE HYDROCHLORIDE [Concomitant]
     Active Substance: DULOXETINE HYDROCHLORIDE
  20. COENZYME Q10 [Concomitant]
     Active Substance: DIETARY SUPPLEMENT\UBIDECARENONE

REACTIONS (1)
  - General physical health deterioration [Unknown]
